FAERS Safety Report 19037620 (Version 1)
Quarter: 2021Q1

REPORT INFORMATION
  Report Type: Spontaneous
  Country: JP (occurrence: JP)
  Receive Date: 20210322
  Receipt Date: 20210322
  Transmission Date: 20210420
  Serious: Yes (Death, Other)
  Sender: FDA-Public Use
  Company Number: JP-AMGEN-JPNSP2021035772

PATIENT
  Age: 9 Decade
  Sex: Female

DRUGS (1)
  1. G?LASTA [Suspect]
     Active Substance: PEGFILGRASTIM
     Indication: NEUTROPENIA
     Dosage: 3.6 MILLIGRAM, QD
     Route: 058
     Dates: start: 20210227, end: 20210228

REACTIONS (3)
  - Death [Fatal]
  - Therapeutic procedure [Fatal]
  - Off label use [Fatal]

NARRATIVE: CASE EVENT DATE: 20210305
